FAERS Safety Report 6394948-9 (Version None)
Quarter: 2009Q4

REPORT INFORMATION
  Report Type: 
  Country: None (occurrence: None)
  Receive Date: 20091009
  Receipt Date: 20091001
  Transmission Date: 20100525
  Serious: Yes (Other)
  Sender: FDA-Public Use
  Company Number: GB-PFIZER INC-2009255627

PATIENT

DRUGS (5)
  1. XALATAN [Suspect]
     Indication: GLAUCOMA
     Route: 047
  2. TEOPTIC [Suspect]
     Route: 047
  3. ATENOLOL [Concomitant]
  4. LIPITOR [Concomitant]
  5. LANSOPRAZOLE [Concomitant]

REACTIONS (6)
  - EYE DISORDER [None]
  - HYPERSENSITIVITY [None]
  - LACRIMATION INCREASED [None]
  - OCULAR HYPERAEMIA [None]
  - PITUITARY TUMOUR [None]
  - VISUAL ACUITY REDUCED [None]
